FAERS Safety Report 19680777 (Version 1)
Quarter: 2021Q3

REPORT INFORMATION
  Report Type: Spontaneous
  Country: FR (occurrence: FR)
  Receive Date: 20210810
  Receipt Date: 20210810
  Transmission Date: 20211014
  Serious: Yes (Other)
  Sender: FDA-Public Use
  Company Number: FR-MYLANLABS-2021M1049768

PATIENT
  Age: 33 Year
  Sex: Female
  Weight: 46 kg

DRUGS (1)
  1. ESOMEPRAZOLE MYLAN 20 MG, G?LULE GASTRO?R?SISTANTE [Suspect]
     Active Substance: ESOMEPRAZOLE
     Indication: GASTRITIS
     Dosage: 20 MILLIGRAM, QD (0?0?1)
     Route: 048
     Dates: start: 20210504, end: 20210507

REACTIONS (8)
  - Headache [Recovered/Resolved]
  - Vision blurred [Recovered/Resolved]
  - Formication [Recovered/Resolved]
  - Abdominal pain upper [Recovered/Resolved]
  - Choking [Recovered/Resolved]
  - Nausea [Recovered/Resolved]
  - Dizziness [Recovered/Resolved]
  - Palpitations [Recovered/Resolved]

NARRATIVE: CASE EVENT DATE: 20210504
